FAERS Safety Report 14909953 (Version 1)
Quarter: 2018Q2

REPORT INFORMATION
  Report Type: Spontaneous
  Country: US (occurrence: US)
  Receive Date: 20180517
  Receipt Date: 20180517
  Transmission Date: 20180711
  Serious: No
  Sender: FDA-Public Use
  Company Number: US-TARO-2017TAR00324

PATIENT
  Age: 31 Year
  Sex: Female
  Weight: 58.96 kg

DRUGS (2)
  1. TERCONAZOLE VAGINAL CREAM 0.8% [Suspect]
     Active Substance: TERCONAZOLE
     Indication: VULVOVAGINAL MYCOTIC INFECTION
     Dosage: UNK, 1X/DAYAT NIGHT
     Route: 067
     Dates: start: 20170421, end: 20170423
  2. FLAGYL [Suspect]
     Active Substance: METRONIDAZOLE\METRONIDAZOLE HYDROCHLORIDE
     Dosage: 1 CAPSULES, 2X/DAY
     Dates: start: 20170424

REACTIONS (10)
  - Bacterial vaginosis [Recovering/Resolving]
  - Hypersensitivity [Unknown]
  - Disturbance in attention [Recovered/Resolved]
  - Muscle tightness [Unknown]
  - Insomnia [Recovered/Resolved]
  - Decreased appetite [Recovered/Resolved]
  - Hypokinesia [Recovered/Resolved]
  - Genital swelling [Recovering/Resolving]
  - Application site erythema [Recovering/Resolving]
  - Gait disturbance [Recovered/Resolved]

NARRATIVE: CASE EVENT DATE: 201704
